FAERS Safety Report 5975960-8 (Version None)
Quarter: 2008Q4

REPORT INFORMATION
  Report Type: 
  Country: None (occurrence: None)
  Receive Date: 20081202
  Receipt Date: 20081124
  Transmission Date: 20090506
  Serious: Yes (Other)
  Sender: FDA-Public Use
  Company Number: US-ELI_LILLY_AND_COMPANY-US200811005481

PATIENT
  Sex: Female

DRUGS (3)
  1. HUMALOG [Suspect]
     Indication: DIABETES MELLITUS
     Dosage: UNK, UNK
  2. LANTUS [Concomitant]
  3. PLAVIX [Concomitant]

REACTIONS (12)
  - BLOOD GLUCOSE INCREASED [None]
  - CARDIAC ENZYMES INCREASED [None]
  - CATHETERISATION CARDIAC [None]
  - CONTUSION [None]
  - EXPIRED DRUG ADMINISTERED [None]
  - FEAR [None]
  - INCORRECT DOSE ADMINISTERED [None]
  - MALAISE [None]
  - STENT PLACEMENT [None]
  - TRANSFUSION [None]
  - VISUAL ACUITY REDUCED [None]
  - WRONG DRUG ADMINISTERED [None]
